FAERS Safety Report 6217486-2 (Version None)
Quarter: 2009Q2

REPORT INFORMATION
  Report Type: 
  Country: None (occurrence: None)
  Receive Date: 20090608
  Receipt Date: 20081119
  Transmission Date: 20091009
  Serious: No
  Sender: FDA-Public Use
  Company Number: A0758019A

PATIENT
  Sex: Female

DRUGS (2)
  1. BUPROPION HYDROCHLORIDE [Suspect]
     Indication: ANXIETY
     Dosage: 300MG PER DAY
     Route: 048
  2. NO CONCURRENT MEDICATIONS [Concomitant]

REACTIONS (3)
  - DRUG INEFFECTIVE [None]
  - HEADACHE [None]
  - WITHDRAWAL SYNDROME [None]
